FAERS Safety Report 8082428 (Version 5)
Quarter: 2012Q4

REPORT INFORMATION
  Report Type: 
  Country: JP (occurrence: JP)
  Receive Date: 20110809
  Receipt Date: 20121005
  Transmission Date: 20130627
  Serious: Yes (Life-Threatening, Other)
  Sender: FDA-Public Use
  Company Number: JP-BAYER-2011-070255

PATIENT
  Age: 63 Year
  Sex: Male
  Weight: 57 kg

DRUGS (10)
  1. NEXAVAR [Suspect]
     Indication: HEPATIC NEOPLASM MALIGNANT
     Dosage: 400 mg, QD
     Route: 048
     Dates: start: 20110621, end: 20110704
  2. NEXAVAR [Suspect]
     Indication: HEPATIC NEOPLASM MALIGNANT
     Dosage: Daily dose 800 mg
     Route: 048
     Dates: start: 20110705, end: 20110803
  3. PONTAL [Suspect]
     Dosage: Daily dose 250 mg
     Route: 048
     Dates: start: 20110719
  4. UNSPECIFIED INGREDIENT [Concomitant]
     Dosage: Daily dose 12.45 g
     Route: 048
  5. BARACLUDE [Concomitant]
     Dosage: Daily dose .5 mg
     Route: 048
  6. PARIET [Concomitant]
     Indication: PAIN PROPHYLAXIS
     Dosage: Daily dose 40 mg
     Route: 048
  7. PARIET [Concomitant]
     Indication: PROPHYLAXIS AGAINST GASTROINTESTINAL ULCER
  8. SUCRALFATE [Concomitant]
     Indication: PROPHYLAXIS AGAINST GASTROINTESTINAL ULCER
     Dosage: Daily dose 30 ml
     Route: 048
  9. PROMAC [POLAPREZINC] [Concomitant]
     Indication: PROPHYLAXIS AGAINST GASTROINTESTINAL ULCER
     Dosage: Daily dose 150 mg
     Route: 048
  10. CYTOTEC [Concomitant]
     Indication: PAIN PROPHYLAXIS
     Dosage: Daily dose 800 ?g
     Route: 048
     Dates: start: 20110719

REACTIONS (6)
  - Gastric ulcer [Recovered/Resolved]
  - Abdominal pain upper [Recovered/Resolved]
  - Faeces discoloured [Recovered/Resolved]
  - Haematemesis [Recovered/Resolved]
  - Decreased appetite [Recovering/Resolving]
  - Pyloric stenosis [None]
